FAERS Safety Report 5069793-7 (Version None)
Quarter: 2006Q3

REPORT INFORMATION
  Report Type: 
  Country: None (occurrence: None)
  Receive Date: 20060803
  Receipt Date: 20060728
  Transmission Date: 20061208
  Serious: Yes (Death, Other)
  Sender: FDA-Public Use
  Company Number: GB-GLAXOSMITHKLINE-B0432907A

PATIENT
  Age: 55 Year
  Sex: Male

DRUGS (1)
  1. CO-AMOXICLAV [Suspect]
     Route: 048
     Dates: start: 20060215, end: 20060321

REACTIONS (3)
  - HEPATIC FAILURE [None]
  - JAUNDICE [None]
  - SEPSIS [None]
